FAERS Safety Report 8252231-0 (Version None)
Quarter: 2012Q2

REPORT INFORMATION
  Report Type: 
  Country: None (occurrence: None)
  Receive Date: 20120402
  Receipt Date: 20111010
  Transmission Date: 20120825
  Serious: No
  Sender: FDA-Public Use
  Company Number: US-ABBOTT-11P-163-0855087-00

PATIENT
  Sex: Male
  Weight: 93.07 kg

DRUGS (10)
  1. HYDROCHLOROTHIAZIDE [Concomitant]
     Indication: HYPERTENSION
  2. UNKNOWN MEDICATION [Concomitant]
     Indication: DEPRESSION
  3. UNKNOWN MEDICATIONS [Concomitant]
     Indication: HIV INFECTION
  4. UNKNOWN ANTIVIRAL [Concomitant]
     Indication: HIV INFECTION
  5. UNKNOWN ANTIPSYCHOTIC [Concomitant]
     Indication: BIPOLAR DISORDER
  6. VITAMIN B COMPLEX CAP [Concomitant]
     Indication: VITAMIN SUPPLEMENTATION
  7. ASCORBIC ACID [Concomitant]
     Indication: VITAMIN SUPPLEMENTATION
  8. MULTI-VITAMIN [Concomitant]
     Indication: VITAMIN SUPPLEMENTATION
  9. ANDROGEL [Suspect]
     Indication: BLOOD TESTOSTERONE DECREASED
     Route: 062
     Dates: start: 20110301
  10. KLONOPIN [Concomitant]
     Indication: ANXIETY

REACTIONS (6)
  - DEPRESSION [None]
  - ASTHENIA [None]
  - BLOOD TESTOSTERONE DECREASED [None]
  - BLOOD TESTOSTERONE ABNORMAL [None]
  - DRUG INEFFECTIVE [None]
  - NEPHROLITHIASIS [None]
